FAERS Safety Report 16461420 (Version 2)
Quarter: 2019Q2

REPORT INFORMATION
  Report Type: Spontaneous
  Country: US (occurrence: US)
  Receive Date: 20190621
  Receipt Date: 20190628
  Transmission Date: 20190711
  Serious: No
  Sender: FDA-Public Use
  Company Number: US-009507513-1906USA006401

PATIENT
  Sex: Female

DRUGS (3)
  1. NEXPLANON [Suspect]
     Active Substance: ETONOGESTREL
     Dosage: 68 MILLIGRAM, 1 IMPLANT EVERY 3 YEARS, 2ND ONE PLACED RECENTLY, LEFT ARM
     Route: 059
     Dates: start: 20190522
  2. NEXPLANON [Suspect]
     Active Substance: ETONOGESTREL
     Indication: CONTRACEPTION
     Dosage: 68 MILLIGRAM, 1 IMPLANT EVERY 3 YEARS, FIRST ONE
     Route: 059
  3. OMEPRAZOLE. [Concomitant]
     Active Substance: OMEPRAZOLE
     Indication: GASTROOESOPHAGEAL REFLUX DISEASE
     Dosage: 40 MILLIGRAM
     Route: 048

REACTIONS (7)
  - Back pain [Unknown]
  - Muscle spasms [Not Recovered/Not Resolved]
  - Neck pain [Unknown]
  - Limb injury [Not Recovered/Not Resolved]
  - Paraesthesia [Unknown]
  - Musculoskeletal pain [Unknown]
  - Neck injury [Not Recovered/Not Resolved]

NARRATIVE: CASE EVENT DATE: 2019
